FAERS Safety Report 26026080 (Version 3)
Quarter: 2025Q4

REPORT INFORMATION
  Report Type: Report from Study
  Country: US (occurrence: US)
  Receive Date: 20251111
  Receipt Date: 20251231
  Transmission Date: 20260117
  Serious: No
  Sender: PFIZER
  Company Number: US-PFIZER INC-202500219677

PATIENT
  Age: 58 Year
  Sex: Female

DRUGS (20)
  1. IBRANCE [Suspect]
     Active Substance: PALBOCICLIB
     Indication: Breast cancer female
     Dosage: 125 MG, CYCLIC (TAKE 1 TABLET BY MOUTH EVERY DAY FOR 3 WEEKS ON,1 WEEK OFF)
     Route: 048
     Dates: start: 20251105
  2. IBRANCE [Suspect]
     Active Substance: PALBOCICLIB
     Dosage: 125 MG, CYCLIC (TAKE 1 TABLET BY MOUTH EVERY DAY FOR 3 WEEKS ON THEN 1 WEEK OFF)
     Route: 048
  3. ALBUTEROL [Concomitant]
     Active Substance: ALBUTEROL
     Dosage: UNK
  4. CALCIUM [Concomitant]
     Active Substance: CALCIUM
     Dosage: UNK
  5. CETIRIZINE [Concomitant]
     Active Substance: CETIRIZINE HYDROCHLORIDE
     Dosage: UNK
  6. DICLOFENAC [Concomitant]
     Active Substance: DICLOFENAC
     Dosage: UNK
  7. ESTRADIOL [Concomitant]
     Active Substance: ESTRADIOL
     Dosage: UNK
  8. FASLODEX [Concomitant]
     Active Substance: FULVESTRANT
     Dosage: UNK
  9. FLUOXETINE [Concomitant]
     Active Substance: FLUOXETINE HYDROCHLORIDE
     Dosage: UNK
  10. GABAPENTIN [Concomitant]
     Active Substance: GABAPENTIN
     Dosage: UNK
  11. MAGNESIUM OXIDE [Concomitant]
     Active Substance: MAGNESIUM OXIDE
     Dosage: UNK
  12. MONTELUKAST [Concomitant]
     Active Substance: MONTELUKAST
     Dosage: UNK
  13. ONDANSETRON [Concomitant]
     Active Substance: ONDANSETRON
     Dosage: UNK
  14. PANTOPRAZOLE [Concomitant]
     Active Substance: PANTOPRAZOLE
     Dosage: UNK
  15. PEG 3350 [Concomitant]
     Active Substance: POLYETHYLENE GLYCOL 3350
     Dosage: UNK
  16. ROSUVASTATIN [Concomitant]
     Active Substance: ROSUVASTATIN
     Dosage: UNK
  17. SYMBICORT [Concomitant]
     Active Substance: BUDESONIDE\FORMOTEROL FUMARATE DIHYDRATE
     Dosage: UNK
  18. TRAMADOL [Concomitant]
     Active Substance: TRAMADOL
     Dosage: UNK
  19. VITAMIN D NOS [Concomitant]
     Active Substance: CHOLECALCIFEROL\ERGOCALCIFEROL
     Dosage: UNK
  20. XGEVA [Concomitant]
     Active Substance: DENOSUMAB
     Dosage: UNK

REACTIONS (7)
  - Thirst [Unknown]
  - Headache [Unknown]
  - Productive cough [Unknown]
  - Stomatitis [Not Recovered/Not Resolved]
  - Nasopharyngitis [Unknown]
  - Glossitis [Unknown]
  - Diarrhoea [Unknown]

NARRATIVE: CASE EVENT DATE: 20250101
